FAERS Safety Report 8853299 (Version 1)
Quarter: 2012Q4

REPORT INFORMATION
  Report Type: 
  Country: US (occurrence: US)
  Receive Date: 20121022
  Receipt Date: 20121022
  Transmission Date: 20130627
  Serious: No
  Sender: FDA-Public Use
  Company Number: US-009507513-1210USA007211

PATIENT
  Sex: Male

DRUGS (3)
  1. PEGINTRON [Suspect]
     Indication: HEPATITIS C
     Dosage: 120 Microgram, qd
     Route: 058
     Dates: start: 200801
  2. RIBASPHERE [Concomitant]
  3. INCIVEK [Concomitant]

REACTIONS (2)
  - Viral load increased [Unknown]
  - Drug ineffective [Unknown]
